FAERS Safety Report 6348328-2 (Version None)
Quarter: 2009Q3

REPORT INFORMATION
  Report Type: 
  Country: None (occurrence: None)
  Receive Date: 20090908
  Receipt Date: 20090819
  Transmission Date: 20100115
  Serious: Yes (Other)
  Sender: FDA-Public Use
  Company Number: 2009SP021090

PATIENT
  Age: 31 Year
  Sex: Male
  Weight: 83.9154 kg

DRUGS (4)
  1. NOXAFIL [Suspect]
     Indication: FUNGAL INFECTION
     Dosage: 200 MG;BID;PO
     Route: 048
     Dates: start: 20090701
  2. CHANTIX [Suspect]
     Indication: SMOKING CESSATION THERAPY
     Dosage: 1 MG;BID;PO ; 1 MG;BID;PO
     Route: 048
     Dates: start: 20090101, end: 20090301
  3. CHANTIX [Suspect]
     Indication: SMOKING CESSATION THERAPY
     Dosage: 1 MG;BID;PO ; 1 MG;BID;PO
     Route: 048
     Dates: start: 20090601, end: 20090729
  4. LEXAPRO [Concomitant]

REACTIONS (5)
  - ANXIETY [None]
  - DEPRESSION [None]
  - DRUG INTERACTION [None]
  - PAIN [None]
  - PANCREATITIS [None]
